FAERS Safety Report 8929434 (Version 2)
Quarter: 2012Q4

REPORT INFORMATION
  Report Type: 
  Country: US (occurrence: None)
  Receive Date: 20121120
  Receipt Date: 20121123
  Transmission Date: 20130627
  Serious: Yes (Other)
  Sender: FDA-Public Use
  Company Number: USA/USA/12/0026601

PATIENT
  Age: 33 Year
  Sex: Female
  Weight: 86.18 kg

DRUGS (3)
  1. CITALOPRAM [Suspect]
     Indication: MAJOR DEPRESSIVE DISORDER NOS
     Route: 048
     Dates: start: 201102, end: 20121107
  2. CITALOPRAM [Suspect]
     Indication: GENERALISED ANXIETY DISORDER
     Route: 048
     Dates: start: 201102, end: 20121107
  3. XANAX (ALPRAZOLAM) [Concomitant]

REACTIONS (10)
  - Suicidal ideation [None]
  - Mood altered [None]
  - Crying [None]
  - Mania [None]
  - Impulsive behaviour [None]
  - Anxiety [None]
  - Panic attack [None]
  - Aggression [None]
  - Feeling abnormal [None]
  - Product quality issue [None]
